FAERS Safety Report 26186358 (Version 1)
Quarter: 2025Q4

REPORT INFORMATION
  Report Type: Spontaneous
  Country: US (occurrence: None)
  Receive Date: 20251221
  Receipt Date: 20251221
  Transmission Date: 20260118
  Serious: Yes (Life-Threatening, Hospitalization, Disabling, Other)
  Sender: FDA-CTU
  Company Number: None

PATIENT
  Age: 86 Year
  Sex: Female
  Weight: 73.8 kg

DRUGS (7)
  1. ZYPREXA [Suspect]
     Active Substance: OLANZAPINE
     Indication: Agitation
     Dates: start: 20251216, end: 20251217
  2. ZYPREXA [Suspect]
     Active Substance: OLANZAPINE
     Indication: Agitation
     Dosage: OTHER QUANTITY : 1 INJECTION(S);
     Dates: start: 20251216, end: 20251218
  3. HALOPERIDOL [Suspect]
     Active Substance: HALOPERIDOL
  4. ENOXAPARIN [Suspect]
     Active Substance: ENOXAPARIN
  5. VITAMIN D [Concomitant]
     Active Substance: VITAMIN D NOS
  6. Geritol [Concomitant]
  7. B12 [Concomitant]

REACTIONS (13)
  - Product use issue [None]
  - Product communication issue [None]
  - Victim of abuse [None]
  - Pneumonia [None]
  - Decubitus ulcer [None]
  - Poor personal hygiene [None]
  - Infrequent bowel movements [None]
  - Hallucination [None]
  - Personality change [None]
  - Mobility decreased [None]
  - Legal problem [None]
  - Drug monitoring procedure not performed [None]
  - Victim of crime [None]

NARRATIVE: CASE EVENT DATE: 20251216
